FAERS Safety Report 4367396-0 (Version None)
Quarter: 2004Q2

REPORT INFORMATION
  Report Type: 
  Country: None (occurrence: None)
  Receive Date: 20040528
  Receipt Date: 20040528
  Transmission Date: 20050107
  Serious: Yes (Life-Threatening, Hospitalization)
  Sender: FDA-Public Use
  Company Number: None

PATIENT
  Sex: Male
  Weight: 63.5036 kg

DRUGS (1)
  1. THALIDOMIDE 250 MG CELGENE [Suspect]
     Indication: MULTIPLE MYELOMA
     Dosage: 1 TAB BID ORAL
     Route: 048
     Dates: start: 20040214, end: 20040425

REACTIONS (3)
  - ALVEOLITIS [None]
  - ANOREXIA [None]
  - FATIGUE [None]
